FAERS Safety Report 17291567 (Version 1)
Quarter: 2020Q1

REPORT INFORMATION
  Report Type: Spontaneous
  Country: SE (occurrence: SE)
  Receive Date: 20200121
  Receipt Date: 20200121
  Transmission Date: 20200409
  Serious: Yes (Other)
  Sender: FDA-Public Use
  Company Number: SE-TEVA-2020-SE-1170234

PATIENT
  Age: 49 Year
  Sex: Female
  Weight: 49 kg

DRUGS (4)
  1. LEVAXIN [Concomitant]
     Active Substance: LEVOTHYROXINE SODIUM
  2. OMEPRAZOLE. [Concomitant]
     Active Substance: OMEPRAZOLE
     Dosage: PROTECTION AGAINST STOMACH PROBLEMS WHEN TAKING NAPROXEN
     Dates: start: 20191208, end: 20191220
  3. NAPROXEN. [Suspect]
     Active Substance: NAPROXEN
     Indication: PERIARTHRITIS
     Dosage: 500 MG 1 TABLET PER DAY FOR 14 DAYS
  4. NAPROXEN. [Suspect]
     Active Substance: NAPROXEN
     Dosage: 250 MG 1 TABLET / DAY FOR 10 DAYS
     Dates: start: 201909

REACTIONS (3)
  - Rash [Not Recovered/Not Resolved]
  - Respiratory tract infection [Not Recovered/Not Resolved]
  - Pruritus [Not Recovered/Not Resolved]

NARRATIVE: CASE EVENT DATE: 201910
